FAERS Safety Report 8501411 (Version 3)
Quarter: 2013Q1

REPORT INFORMATION
  Report Type: Spontaneous
  Country: TR (occurrence: TR)
  Receive Date: 20120410
  Receipt Date: 20130115
  Transmission Date: 20140127
  Serious: Yes (Other)
  Sender: FDA-Public Use
  Company Number: TR-AMGEN-TURSP2012021402

PATIENT
  Age: 55 Year
  Sex: Female
  Weight: 100 kg

DRUGS (2)
  1. ENBREL [Suspect]
     Indication: ANKYLOSING SPONDYLITIS
     Dosage: 25 MG, 2X/WEEK
     Route: 058
     Dates: start: 20100611, end: 20110405
  2. ENBREL [Suspect]
     Dosage: 50 MG, QWK
     Route: 058
     Dates: start: 20110405

REACTIONS (14)
  - Fatigue [Unknown]
  - Loss of consciousness [Not Recovered/Not Resolved]
  - Blood pressure increased [Not Recovered/Not Resolved]
  - Depression [Not Recovered/Not Resolved]
  - Oedema peripheral [Not Recovered/Not Resolved]
  - Pain in extremity [Not Recovered/Not Resolved]
  - Hypoaesthesia [Not Recovered/Not Resolved]
  - Generalised erythema [Not Recovered/Not Resolved]
  - Musculoskeletal discomfort [Recovering/Resolving]
  - Condition aggravated [Unknown]
  - Burning sensation [Not Recovered/Not Resolved]
  - Weight decreased [Recovered/Resolved]
  - Musculoskeletal stiffness [Recovered/Resolved]
  - Injection site pain [Not Recovered/Not Resolved]
